FAERS Safety Report 12192843 (Version 2)
Quarter: 2016Q4

REPORT INFORMATION
  Report Type: Report from Study
  Country: US (occurrence: US)
  Receive Date: 20160318
  Receipt Date: 20161011
  Transmission Date: 20170207
  Serious: Yes (Hospitalization)
  Sender: FDA-Public Use
  Company Number: US-ACTELION-A-US2016-131946

PATIENT
  Age: 61 Year
  Sex: Female

DRUGS (2)
  1. REVATIO [Concomitant]
     Active Substance: SILDENAFIL CITRATE
  2. VELETRI [Suspect]
     Active Substance: EPOPROSTENOL
     Indication: PULMONARY ARTERIAL HYPERTENSION
     Dosage: 42 NG/KG, PER MIN
     Route: 042
     Dates: start: 20101021

REACTIONS (6)
  - Bronchitis [Recovering/Resolving]
  - Device dislocation [Unknown]
  - Catheter site pain [Unknown]
  - Dyspnoea [Recovering/Resolving]
  - Catheter site infection [Recovering/Resolving]
  - Chest pain [Unknown]
